FAERS Safety Report 11644744 (Version 1)
Quarter: 2015Q4

REPORT INFORMATION
  Report Type: Spontaneous
  Country: US (occurrence: None)
  Receive Date: 20151019
  Receipt Date: 20151019
  Transmission Date: 20160304
  Serious: Yes (Hospitalization, Disabling)
  Sender: FDA-Public Use
  Company Number: None

PATIENT
  Age: 74 Year
  Sex: Female
  Weight: 56.7 kg

DRUGS (14)
  1. OMEPRAZOLE. [Concomitant]
     Active Substance: OMEPRAZOLE
  2. SEROQUEL [Concomitant]
     Active Substance: QUETIAPINE FUMARATE
  3. CLOPIDOGREL [Concomitant]
     Active Substance: CLOPIDOGREL BISULFATE
  4. METFORMIN HCL [Suspect]
     Active Substance: METFORMIN HYDROCHLORIDE
     Indication: DIABETES MELLITUS
     Route: 048
  5. ATROVASTIN [Concomitant]
  6. INSULIN [Concomitant]
     Active Substance: INSULIN NOS
  7. LEVOTHYROXINE SODIUM. [Concomitant]
     Active Substance: LEVOTHYROXINE SODIUM
  8. BENZOTROPIN MESYLATE [Concomitant]
  9. ABILIFY [Concomitant]
     Active Substance: ARIPIPRAZOLE
  10. RAMIPRIL. [Concomitant]
     Active Substance: RAMIPRIL
  11. FERROUS SULFATE [Concomitant]
     Active Substance: FERROUS SULFATE\FERROUS SULFATE, DRIED
  12. CYMBALTA [Suspect]
     Active Substance: DULOXETINE HYDROCHLORIDE
     Indication: DEPRESSION
     Route: 048
  13. METOPROLOL SUCCINATE EXTENDED-RELEASE [Concomitant]
     Active Substance: METOPROLOL SUCCINATE
  14. LYRICA [Concomitant]
     Active Substance: PREGABALIN

REACTIONS (37)
  - Hallucination [None]
  - Syncope [None]
  - Headache [None]
  - Balance disorder [None]
  - Haemorrhage [None]
  - Decreased appetite [None]
  - Ocular icterus [None]
  - Vomiting [None]
  - Diarrhoea [None]
  - Dysuria [None]
  - Abdominal pain upper [None]
  - Pruritus [None]
  - Pyrexia [None]
  - Confusional state [None]
  - Somnolence [None]
  - Jaundice [None]
  - Heart rate increased [None]
  - Dysarthria [None]
  - Swollen tongue [None]
  - Hyperhidrosis [None]
  - Fatigue [None]
  - Agitation [None]
  - Nausea [None]
  - Eye swelling [None]
  - Chromaturia [None]
  - Coordination abnormal [None]
  - Tunnel vision [None]
  - Halo vision [None]
  - Faeces pale [None]
  - Hyperreflexia [None]
  - Asthenia [None]
  - Swelling face [None]
  - Dry mouth [None]
  - Dizziness [None]
  - Vision blurred [None]
  - Eye pain [None]
  - Increased tendency to bruise [None]

NARRATIVE: CASE EVENT DATE: 20150511
